FAERS Safety Report 14314545 (Version 1)
Quarter: 2017Q4

REPORT INFORMATION
  Report Type: Spontaneous
  Country: AT (occurrence: AT)
  Receive Date: 20171221
  Receipt Date: 20171221
  Transmission Date: 20180321
  Serious: Yes (Other)
  Sender: FDA-Public Use
  Company Number: AT-JNJFOC-20171225589

PATIENT
  Age: 43 Year
  Sex: Male

DRUGS (3)
  1. RIVAROXABAN [Suspect]
     Active Substance: RIVAROXABAN
     Indication: PRODUCT USED FOR UNKNOWN INDICATION
     Route: 048
  2. ACETYLSALICYLIC ACID [Suspect]
     Active Substance: ASPIRIN
     Indication: ANTIPLATELET THERAPY
     Route: 065
  3. ATORVASTATIN [Concomitant]
     Active Substance: ATORVASTATIN
     Indication: LOW DENSITY LIPOPROTEIN INCREASED
     Route: 065

REACTIONS (8)
  - Drug ineffective for unapproved indication [Unknown]
  - Off label use [Unknown]
  - Drug resistance [Unknown]
  - Peripheral ischaemia [Unknown]
  - Vascular graft thrombosis [Unknown]
  - Vascular graft occlusion [Unknown]
  - Device embolisation [Unknown]
  - Product use in unapproved indication [Unknown]
